FAERS Safety Report 6504877-5 (Version None)
Quarter: 2009Q4

REPORT INFORMATION
  Report Type: 
  Country: None (occurrence: None)
  Receive Date: 20091218
  Receipt Date: 20091116
  Transmission Date: 20100525
  Serious: No
  Sender: FDA-Public Use
  Company Number: US-BAYER-200917529BCC

PATIENT
  Sex: Female

DRUGS (3)
  1. FEMSTAT [Suspect]
     Indication: HYPERTONIC BLADDER
     Route: 065
  2. ESTRACE [Concomitant]
     Indication: HYPERTONIC BLADDER
     Route: 065
  3. HORMONE PATCH [Concomitant]
     Indication: HYPERTONIC BLADDER
     Route: 065

REACTIONS (1)
  - HYPERTONIC BLADDER [None]
